FAERS Safety Report 8560404 (Version 3)
Quarter: 2012Q4

REPORT INFORMATION
  Report Type: 
  Country: DE (occurrence: DE)
  Receive Date: 20120514
  Receipt Date: 20120912
  Transmission Date: 20130627
  Serious: Yes (Death)
  Sender: FDA-Public Use
  Company Number: DE-CELGENEUS-062-21880-12050283

PATIENT

DRUGS (6)
  1. REVLIMID [Suspect]
     Indication: MULTIPLE MYELOMA
     Route: 048
  2. BUSULFAN [Concomitant]
     Indication: MULTIPLE MYELOMA
     Dosage: 12.2 mg/kg
     Route: 041
  3. BUSULFAN [Concomitant]
     Dosage: 11.2 mg/kg
     Route: 041
  4. CYCLOPHOSPHAMID [Concomitant]
     Indication: MULTIPLE MYELOMA
     Dosage: 120 mg/kg
     Route: 065
  5. ATG FRESEINUS [Concomitant]
     Indication: MULTIPLE MYELOMA
     Dosage: 20 mg/kg
     Route: 065
  6. G-CSF [Concomitant]
     Indication: DRUG USE FOR UNKNOWN INDICATION
     Route: 041

REACTIONS (1)
  - Multi-organ failure [Fatal]
